FAERS Safety Report 24790001 (Version 1)
Quarter: 2024Q4

REPORT INFORMATION
  Report Type: Spontaneous
  Country: IT (occurrence: IT)
  Receive Date: 20241230
  Receipt Date: 20241230
  Transmission Date: 20250115
  Serious: Yes (Other)
  Sender: DAIICHI
  Company Number: None

PATIENT
  Age: 61 Year
  Sex: Female

DRUGS (1)
  1. ENHERTU [Suspect]
     Active Substance: FAM-TRASTUZUMAB DERUXTECAN-NXKI
     Indication: Product used for unknown indication
     Dosage: 227 MG
     Route: 042
     Dates: start: 20240530, end: 20241121

REACTIONS (3)
  - Hepatotoxicity [Unknown]
  - Myelosuppression [Unknown]
  - Neutropenia [Unknown]

NARRATIVE: CASE EVENT DATE: 20241121
